FAERS Safety Report 8243666-0 (Version None)
Quarter: 2012Q1

REPORT INFORMATION
  Report Type: 
  Country: None (occurrence: None)
  Receive Date: 20120309
  Receipt Date: 20110627
  Transmission Date: 20120608
  Serious: Yes (Other)
  Sender: FDA-Public Use
  Company Number: AUR-APU-2011-00986

PATIENT
  Sex: Female

DRUGS (1)
  1. METFORMIN HCL [Suspect]
     Indication: PRODUCT USED FOR UNKNOWN INDICATION
     Dosage: 1000 MG (500 MG, 2 IN 1 D), UNKNOWN

REACTIONS (4)
  - BLOOD GLUCOSE INCREASED [None]
  - VOMITING [None]
  - DRUG INEFFECTIVE [None]
  - NAUSEA [None]
